FAERS Safety Report 4299713-4 (Version None)
Quarter: 2004Q1

REPORT INFORMATION
  Report Type: 
  Country: None (occurrence: None)
  Receive Date: 20040126
  Receipt Date: 20031111
  Transmission Date: 20041129
  Serious: No
  Sender: FDA-Public Use
  Company Number: USA031152268

PATIENT
  Age: 8 Year
  Sex: Male
  Weight: 22 kg

DRUGS (6)
  1. STRATTERA [Suspect]
     Indication: ATTENTION DEFICIT/HYPERACTIVITY DISORDER
     Dates: start: 20030301
  2. NASAREL (FLUNISOLIDE) [Concomitant]
  3. TRAZODONE HCL [Concomitant]
  4. CLARITIN [Concomitant]
  5. AEROBID [Concomitant]
  6. RITALIN [Concomitant]

REACTIONS (2)
  - CONSTIPATION [None]
  - FAECALOMA [None]
